FAERS Safety Report 13047903 (Version 2)
Quarter: 2016Q4

REPORT INFORMATION
  Report Type: Spontaneous
  Country: PH (occurrence: PH)
  Receive Date: 20161220
  Receipt Date: 20161228
  Transmission Date: 20170207
  Serious: Yes (Life-Threatening, Hospitalization, Other)
  Sender: FDA-Public Use
  Company Number: PHHY2016PH170699

PATIENT
  Age: 33 Year
  Sex: Male

DRUGS (6)
  1. GLIBENCLAMIDE [Suspect]
     Active Substance: GLYBURIDE
     Indication: DIABETES MELLITUS
     Dosage: 5 MG, QD
     Route: 065
  2. ALCOHOL. [Concomitant]
     Active Substance: ALCOHOL
     Indication: PRODUCT USED FOR UNKNOWN INDICATION
     Dosage: UNK
     Route: 065
  3. METFORMIN [Suspect]
     Active Substance: METFORMIN HYDROCHLORIDE
     Indication: DIABETES MELLITUS
     Dosage: 500 MG, BID
     Route: 065
  4. METFORMIN [Suspect]
     Active Substance: METFORMIN HYDROCHLORIDE
     Dosage: 28 DF (EQUIVALENT TO 14 G OF METFORMIN), UNK
     Route: 048
  5. GLIBENCLAMIDE [Suspect]
     Active Substance: GLYBURIDE
     Dosage: 12 DF (EQUIVALENT TO 60 MG), UNK
     Route: 048
  6. METHAMPHETAMINE [Concomitant]
     Active Substance: METHAMPHETAMINE
     Indication: PRODUCT USED FOR UNKNOWN INDICATION
     Dosage: UNK
     Route: 065

REACTIONS (7)
  - Tachycardia [Unknown]
  - Headache [Unknown]
  - Intentional overdose [Recovering/Resolving]
  - Nausea [Unknown]
  - Dyspnoea [Unknown]
  - Lactic acidosis [Recovering/Resolving]
  - Blood pressure increased [Unknown]
